FAERS Safety Report 14921857 (Version 1)
Quarter: 2018Q2

REPORT INFORMATION
  Report Type: Spontaneous
  Country: FR (occurrence: FR)
  Receive Date: 20180522
  Receipt Date: 20180522
  Transmission Date: 20180711
  Serious: Yes (Other)
  Sender: FDA-Public Use
  Company Number: FR-MERCK KGAA-2048207

PATIENT
  Age: 54 Year
  Sex: Female

DRUGS (1)
  1. NOVOTHYROX [Suspect]
     Active Substance: LEVOTHYROXINE SODIUM
     Indication: THYROIDITIS
     Dates: start: 20170717

REACTIONS (26)
  - Malaise [None]
  - Gait disturbance [None]
  - Constipation [None]
  - Anxiety [None]
  - Fatigue [None]
  - Arthralgia [None]
  - Pruritus [None]
  - Hypersensitivity [None]
  - Diarrhoea [None]
  - Weight increased [None]
  - Muscle spasms [None]
  - Photosensitivity reaction [None]
  - Alopecia [None]
  - Impaired driving ability [None]
  - Phobia of driving [None]
  - Bradycardia [None]
  - Skin disorder [None]
  - Abdominal discomfort [None]
  - Mood altered [None]
  - Decreased activity [None]
  - Dizziness [None]
  - Psychiatric symptom [None]
  - Libido decreased [None]
  - Decreased interest [None]
  - Memory impairment [None]
  - Myalgia [None]

NARRATIVE: CASE EVENT DATE: 2017
